FAERS Safety Report 13918457 (Version 1)
Quarter: 2017Q3

REPORT INFORMATION
  Report Type: Report from Study
  Country: US (occurrence: US)
  Receive Date: 20170829
  Receipt Date: 20170829
  Transmission Date: 20171127
  Serious: Yes (Other)
  Sender: FDA-Public Use
  Company Number: US-ACTELION-A-NJ2016-142546

PATIENT
  Age: 46 Year
  Sex: Female
  Weight: 66.67 kg

DRUGS (8)
  1. UPTRAVI [Suspect]
     Active Substance: SELEXIPAG
     Dosage: 400 MCG, BID
     Route: 048
  2. UPTRAVI [Suspect]
     Active Substance: SELEXIPAG
     Dosage: 200 MCG, BID
     Route: 048
     Dates: start: 20160909
  3. UPTRAVI [Suspect]
     Active Substance: SELEXIPAG
     Dosage: 1000 MCG, BID
     Route: 048
  4. REVATIO [Concomitant]
     Active Substance: SILDENAFIL CITRATE
  5. UPTRAVI [Suspect]
     Active Substance: SELEXIPAG
     Dosage: 600 MCG, BID
     Route: 048
  6. XARELTO [Concomitant]
     Active Substance: RIVAROXABAN
  7. UPTRAVI [Suspect]
     Active Substance: SELEXIPAG
     Indication: PULMONARY ARTERIAL HYPERTENSION
     Dosage: 400 MCG, UNK
     Route: 048
  8. LETAIRIS [Concomitant]
     Active Substance: AMBRISENTAN

REACTIONS (17)
  - Migraine [Unknown]
  - Vomiting [Unknown]
  - Irritability [Unknown]
  - Headache [Unknown]
  - Oxygen saturation decreased [Unknown]
  - Pain [Unknown]
  - Thrombosis [Unknown]
  - Walking distance test abnormal [Unknown]
  - Speech disorder [Unknown]
  - Therapy non-responder [Unknown]
  - Dyspnoea [Unknown]
  - Nausea [Unknown]
  - Diarrhoea [Unknown]
  - Pain in extremity [Unknown]
  - Toothache [Unknown]
  - Pain in jaw [Unknown]
  - Myalgia [Unknown]
